FAERS Safety Report 5953333-1 (Version None)
Quarter: 2008Q4

REPORT INFORMATION
  Report Type: 
  Country: None (occurrence: None)
  Receive Date: 20081114
  Receipt Date: 20081107
  Transmission Date: 20090506
  Serious: Yes (Congenital Anomaly)
  Sender: FDA-Public Use
  Company Number: GB-B.I. PHARMACEUTICALS,INC./RIDGEFIELD-2008-BP-05069BP

PATIENT

DRUGS (5)
  1. VIRAMUNE [Suspect]
     Indication: HIV INFECTION
     Dosage: 200MG
     Route: 015
     Dates: start: 20070801, end: 20070905
  2. LAMIVUDINE + ZIDOVUDINE [Suspect]
     Indication: HIV INFECTION
     Dosage: 3090/150MG
     Route: 015
     Dates: start: 20070801, end: 20070905
  3. LOPINAVIR AND RITONAVIR [Suspect]
     Indication: HIV INFECTION
     Dosage: 200/50 MG
     Route: 015
     Dates: start: 20070920
  4. EFAVIRENZ [Suspect]
     Indication: HIV INFECTION
     Dosage: 600MG
     Route: 015
     Dates: start: 20021001, end: 20070816
  5. KIVEXA [Suspect]
     Indication: HIV INFECTION
     Dosage: 600/300 MG
     Route: 015
     Dates: start: 20020101, end: 20070901

REACTIONS (2)
  - CARDIAC MALPOSITION [None]
  - DIAPHRAGMATIC DISORDER [None]
